FAERS Safety Report 12620720 (Version 1)
Quarter: 2016Q3

REPORT INFORMATION
  Report Type: Report from Study
  Country: US (occurrence: US)
  Receive Date: 20160804
  Receipt Date: 20160804
  Transmission Date: 20161109
  Serious: No
  Sender: FDA-Public Use
  Company Number: US-AMGEN-USASL2016098008

PATIENT
  Age: 56 Year
  Sex: Female

DRUGS (1)
  1. ENBREL [Suspect]
     Active Substance: ETANERCEPT
     Indication: RHEUMATOID ARTHRITIS
     Dosage: 25 MG, 2 TIMES/WK
     Route: 065
     Dates: start: 2002

REACTIONS (6)
  - Asthma [Unknown]
  - Vitamin B12 decreased [Unknown]
  - Blood folate decreased [Unknown]
  - Sleep disorder due to general medical condition, hypersomnia type [Unknown]
  - Cardiomegaly [Unknown]
  - Fatigue [Unknown]
